FAERS Safety Report 6746019-7 (Version None)
Quarter: 2010Q2

REPORT INFORMATION
  Report Type: 
  Country: None (occurrence: None)
  Receive Date: 20100528
  Receipt Date: 20100520
  Transmission Date: 20101027
  Serious: Yes (Other)
  Sender: FDA-Public Use
  Company Number: BR-PFIZER INC-2010063420

PATIENT
  Age: 55 Year
  Sex: Male
  Weight: 90 kg

DRUGS (9)
  1. VIAGRA [Suspect]
     Indication: ERECTILE DYSFUNCTION
     Dosage: 50 MG, AS NEEDED
     Route: 048
     Dates: start: 20070101
  2. AMLODIPINE BESYLATE/VALSARTAN [Concomitant]
     Indication: HYPERTENSION
     Dosage: UNK
  3. METFORMIN HYDROCHLORIDE/VILDAGLIPTIN [Concomitant]
     Indication: TYPE 2 DIABETES MELLITUS
     Dosage: UNK
  4. LOVAZA [Concomitant]
     Dosage: UNK
  5. METHIONINE [Concomitant]
     Dosage: UNK
  6. BUFERIN [Concomitant]
     Indication: BLOOD DISORDER
     Dosage: UNK
  7. ZOLPIDEM TARTRATE [Concomitant]
     Indication: DEPRESSION
     Dosage: UNK
  8. CLOXAZOLAM [Concomitant]
     Indication: DEPRESSION
     Dosage: UNK
  9. WELLBUTRIN [Concomitant]
     Dosage: UNK

REACTIONS (4)
  - DENGUE FEVER [None]
  - DRUG INEFFECTIVE [None]
  - MALAISE [None]
  - PYREXIA [None]
